FAERS Safety Report 8475731-7 (Version None)
Quarter: 2012Q2

REPORT INFORMATION
  Report Type: 
  Country: None (occurrence: None)
  Receive Date: 20120628
  Receipt Date: 20120626
  Transmission Date: 20120825
  Serious: Yes (Other)
  Sender: FDA-Public Use
  Company Number: IL-GLAXOSMITHKLINE-B0811077A

PATIENT
  Sex: Female

DRUGS (2)
  1. STEROIDS [Concomitant]
  2. PROMACTA [Suspect]
     Indication: PRODUCT USED FOR UNKNOWN INDICATION
     Dosage: 75MG PER DAY
     Route: 065

REACTIONS (2)
  - THROMBOCYTOPENIA [None]
  - HEADACHE [None]
